FAERS Safety Report 4478649-X (Version None)
Quarter: 2004Q3

REPORT INFORMATION
  Report Type: 
  Country: None (occurrence: None)
  Receive Date: 20040923
  Receipt Date: 20040607
  Transmission Date: 20050211
  Serious: Yes (Other)
  Sender: FDA-Public Use
  Company Number: 207074

PATIENT
  Age: 59 Year
  Sex: Female

DRUGS (5)
  1. AVASTIN [Suspect]
     Indication: COLON CANCER METASTATIC
     Dosage: INTRAVENOUS
     Route: 042
     Dates: start: 20040428
  2. IRINOTECAN HCL [Concomitant]
  3. LEUCOVORIN CALCIUM [Concomitant]
  4. FLUOROURACIL [Concomitant]
  5. WARFARIN SODIUM [Concomitant]

REACTIONS (1)
  - DEEP VEIN THROMBOSIS [None]
